FAERS Safety Report 17633988 (Version 1)
Quarter: 2020Q2

REPORT INFORMATION
  Report Type: Spontaneous
  Country: US (occurrence: US)
  Receive Date: 20200407
  Receipt Date: 20200407
  Transmission Date: 20200713
  Serious: No
  Sender: FDA-Public Use
  Company Number: US-GALDERMA-US2020003516

PATIENT
  Age: 20 Year
  Sex: Female

DRUGS (4)
  1. PROACTIV GREEN TEA MOISTURIZER [Concomitant]
     Active Substance: COSMETICS
     Indication: SCAR
     Route: 061
     Dates: start: 201901, end: 201902
  2. PROACTIV MD ADAPALENE ACNE TREATMENT [Suspect]
     Active Substance: ADAPALENE
     Indication: SCAR
     Dosage: 0.1%
     Route: 061
     Dates: start: 201901, end: 201902
  3. PROACTIV MD DEEP CLEANSING FACE WASH [Concomitant]
     Active Substance: COSMETICS
     Indication: SCAR
     Route: 061
     Dates: start: 201901, end: 201902
  4. PROACTIV MD DAILY OIL CONTROL SPF 30 [Suspect]
     Active Substance: AVOBENZONE\OCTISALATE\OCTOCRYLENE
     Indication: SCAR
     Route: 061
     Dates: start: 201901, end: 201902

REACTIONS (10)
  - Overdose [Recovered/Resolved]
  - Erythema [Recovered/Resolved]
  - Dry skin [Recovered/Resolved]
  - Pruritus [Recovered/Resolved]
  - Rash [Recovered/Resolved]
  - Skin irritation [Recovered/Resolved]
  - Product use in unapproved indication [Recovered/Resolved]
  - Inappropriate schedule of product administration [Recovered/Resolved]
  - Skin exfoliation [Recovered/Resolved]
  - Pain of skin [Recovered/Resolved]

NARRATIVE: CASE EVENT DATE: 201901
